FAERS Safety Report 5692907-2 (Version None)
Quarter: 2008Q2

REPORT INFORMATION
  Report Type: 
  Country: None (occurrence: None)
  Receive Date: 20080327
  Receipt Date: 20071218
  Transmission Date: 20081010
  Serious: Yes (Other)
  Sender: FDA-Public Use
  Company Number: A03200706995

PATIENT
  Age: 47 Year
  Sex: Female
  Weight: 99.7913 kg

DRUGS (5)
  1. AMBIEN CR [Suspect]
     Indication: INSOMNIA
     Dosage: 12.5 MG HS - ORAL
     Route: 048
     Dates: start: 20070101, end: 20071201
  2. CLONAZEPAM [Concomitant]
  3. PROPOXYPHENE HCL AND ACETAMINOPHEN [Concomitant]
  4. SERTRALINE HYDROCHLORIDE [Concomitant]
  5. ARIPIPRAZOLE [Concomitant]

REACTIONS (3)
  - ABNORMAL DREAMS [None]
  - HYPNOPOMPIC HALLUCINATION [None]
  - SLEEP TALKING [None]
